FAERS Safety Report 13064731 (Version 1)
Quarter: 2016Q4

REPORT INFORMATION
  Report Type: Spontaneous
  Country: US (occurrence: US)
  Receive Date: 20161226
  Receipt Date: 20161226
  Transmission Date: 20170207
  Serious: No
  Sender: FDA-Public Use
  Company Number: None

PATIENT
  Age: 64 Year
  Sex: Male
  Weight: 67.5 kg

DRUGS (1)
  1. NEW LOOK EYE RELIEF EYE WASH [Suspect]
     Active Substance: WATER
     Indication: FOREIGN BODY IN EYE
     Dosage: QUANTITY:1 CUP;OTHER FREQUENCY:ONE TIME;?
     Route: 047
     Dates: start: 20161222, end: 20161222

REACTIONS (3)
  - Product substitution issue [None]
  - Eye irritation [None]
  - Application site pain [None]

NARRATIVE: CASE EVENT DATE: 20161222
